FAERS Safety Report 13681439 (Version 1)
Quarter: 2017Q2

REPORT INFORMATION
  Report Type: Spontaneous
  Country: US (occurrence: US)
  Receive Date: 20170622
  Receipt Date: 20170622
  Transmission Date: 20170830
  Serious: Yes (Life-Threatening, Hospitalization)
  Sender: FDA-Public Use
  Company Number: None

PATIENT
  Age: 96 Year
  Sex: Female
  Weight: 40.5 kg

DRUGS (3)
  1. SCOPOLAMINE [Suspect]
     Active Substance: SCOPOLAMINE
     Indication: HYPERCHLORHYDRIA
     Dosage: QUANTITY:2 PATCH(ES);OTHER FREQUENCY:CHANGE EVERY 3 DAY;?
     Route: 061
     Dates: start: 20170512, end: 20170620
  2. ANTACID [Concomitant]
     Active Substance: ALUMINUM HYDROXIDE\CALCIUM CARBONATE\DIMETHICONE\MAGNESIUM HYDROXIDE
  3. ALBUTEROL. [Concomitant]
     Active Substance: ALBUTEROL

REACTIONS (6)
  - Dehydration [None]
  - Gastrointestinal motility disorder [None]
  - Vomiting [None]
  - Intestinal obstruction [None]
  - Pneumonia [None]
  - Respiratory distress [None]

NARRATIVE: CASE EVENT DATE: 20170607
